FAERS Safety Report 11303072 (Version 1)
Quarter: 2015Q3

REPORT INFORMATION
  Report Type: Spontaneous
  Country: US (occurrence: None)
  Receive Date: 20150723
  Receipt Date: 20150723
  Transmission Date: 20151125
  Serious: Yes (Other)
  Sender: FDA-Public Use
  Company Number: None

PATIENT
  Age: 43 Year
  Sex: Female

DRUGS (1)
  1. TRIAMTERENE/HCTZ 37.5MG/25MG [Suspect]
     Active Substance: HYDROCHLOROTHIAZIDE\TRIAMTERENE
     Indication: HYPERTENSION
     Route: 048
     Dates: start: 20150710, end: 20150722

REACTIONS (3)
  - Palpitations [None]
  - Urine output decreased [None]
  - Swelling face [None]

NARRATIVE: CASE EVENT DATE: 20150710
